FAERS Safety Report 10339841 (Version 1)
Quarter: 2014Q3

REPORT INFORMATION
  Report Type: Spontaneous
  Country: US (occurrence: None)
  Receive Date: 20140723
  Receipt Date: 20140723
  Transmission Date: 20150326
  Serious: Yes (Disabling, Other)
  Sender: FDA-Public Use
  Company Number: None

PATIENT
  Age: 39 Year
  Sex: Female
  Weight: 120.2 kg

DRUGS (1)
  1. ORENCIA [Suspect]
     Active Substance: ABATACEPT
     Indication: RHEUMATOID ARTHRITIS
     Dosage: 100 MG EVERY 28 DAYS INTO A VEIN
     Dates: start: 20131107, end: 20140102

REACTIONS (1)
  - Intracranial pressure increased [None]

NARRATIVE: CASE EVENT DATE: 20140102
